FAERS Safety Report 16182519 (Version 2)
Quarter: 2019Q2

REPORT INFORMATION
  Report Type: Report from Study
  Country: GB (occurrence: GB)
  Receive Date: 20190410
  Receipt Date: 20190414
  Transmission Date: 20190711
  Serious: Yes (Other)
  Sender: FDA-Public Use
  Company Number: PHHY2019GB082248

PATIENT
  Sex: Male

DRUGS (1)
  1. COSENTYX [Suspect]
     Active Substance: SECUKINUMAB
     Indication: ANKYLOSING SPONDYLITIS
     Dosage: 150 MG, QW (WEEK 2 LOADING DOSE)
     Route: 058
     Dates: start: 20190319

REACTIONS (3)
  - Lower respiratory tract infection [Unknown]
  - Cough [Unknown]
  - Diarrhoea [Unknown]
